FAERS Safety Report 5723042-2 (Version None)
Quarter: 2008Q2

REPORT INFORMATION
  Report Type: 
  Country: None (occurrence: None)
  Receive Date: 20080428
  Receipt Date: 20080428
  Transmission Date: 20081010
  Serious: Yes (Hospitalization)
  Sender: FDA-Public Use
  Company Number: None

PATIENT
  Sex: Female
  Weight: 69.1 kg

DRUGS (1)
  1. TEMOZOLOMIDE [Suspect]
     Dosage: 3885 MG

REACTIONS (4)
  - BACTERIAL INFECTION [None]
  - LYMPHOPENIA [None]
  - PNEUMONIA [None]
  - TACHYCARDIA [None]
